FAERS Safety Report 5333902-2 (Version None)
Quarter: 2007Q2

REPORT INFORMATION
  Report Type: 
  Country: None (occurrence: None)
  Receive Date: 20070524
  Receipt Date: 20070515
  Transmission Date: 20071010
  Serious: Yes (Other)
  Sender: FDA-Public Use
  Company Number: BR-ASTRAZENECA-2007UW12204

PATIENT
  Age: 73 Year
  Sex: Male
  Weight: 89 kg

DRUGS (6)
  1. TENORETIC 100 [Suspect]
     Indication: HYPERTENSION
     Route: 048
     Dates: start: 19970101
  2. FRONTAL [Concomitant]
     Indication: INSOMNIA
     Route: 048
     Dates: start: 20020101
  3. LORAX [Concomitant]
     Route: 048
     Dates: start: 19870101
  4. COZAAR [Concomitant]
     Indication: HYPERTENSION
     Route: 048
     Dates: start: 20030101
  5. TICLID [Concomitant]
     Indication: ANTICOAGULANT THERAPY
     Route: 048
     Dates: start: 20020101
  6. FINASTERIDE [Concomitant]
     Route: 048
     Dates: start: 20040101

REACTIONS (2)
  - BENIGN PROSTATIC HYPERPLASIA [None]
  - BLOOD UREA INCREASED [None]
